FAERS Safety Report 10619955 (Version 1)
Quarter: 2014Q4

REPORT INFORMATION
  Report Type: Spontaneous
  Country: US (occurrence: None)
  Receive Date: 20141201
  Receipt Date: 20141201
  Transmission Date: 20150529
  Serious: No
  Sender: FDA-Public Use
  Company Number: None

PATIENT
  Age: 48 Year
  Sex: Female
  Weight: 127.01 kg

DRUGS (1)
  1. OFLOXACIN OTIC [Suspect]
     Active Substance: OFLOXACIN
     Indication: OTITIS EXTERNA
     Dosage: ONE DOSE   10 DROPS ONCE DAILY INTO THE EAR

REACTIONS (6)
  - Instillation site swelling [None]
  - Pain [None]
  - Instillation site discomfort [None]
  - Hyperaesthesia [None]
  - Musculoskeletal discomfort [None]
  - Trismus [None]

NARRATIVE: CASE EVENT DATE: 20141128
